APPROVED DRUG PRODUCT: NICORETTE
Active Ingredient: NICOTINE POLACRILEX
Strength: EQ 4MG BASE
Dosage Form/Route: GUM, CHEWING;BUCCAL
Application: N020066 | Product #004
Applicant: HALEON US HOLDINGS LLC
Approved: Sep 25, 2000 | RLD: Yes | RS: No | Type: OTC